FAERS Safety Report 7286744-5 (Version None)
Quarter: 2011Q1

REPORT INFORMATION
  Report Type: 
  Country: None (occurrence: None)
  Receive Date: 20110210
  Receipt Date: 20110201
  Transmission Date: 20110831
  Serious: Yes (Other)
  Sender: FDA-Public Use
  Company Number: US-ABBOTT-11P-163-0702377-00

PATIENT
  Sex: Male
  Weight: 3.237 kg

DRUGS (2)
  1. HUMIRA [Suspect]
     Indication: DRUG EXPOSURE DURING PREGNANCY
     Route: 050
  2. HUMIRA [Suspect]

REACTIONS (4)
  - BREECH PRESENTATION [None]
  - PATERNAL DRUGS AFFECTING FOETUS [None]
  - JAUNDICE [None]
  - DRUG EXPOSURE DURING PREGNANCY [None]
